FAERS Safety Report 18087165 (Version 1)
Quarter: 2020Q3

REPORT INFORMATION
  Report Type: Spontaneous
  Country: US (occurrence: US)
  Receive Date: 20200729
  Receipt Date: 20200729
  Transmission Date: 20201103
  Serious: Yes (Death, Hospitalization)
  Sender: FDA-Public Use
  Company Number: US-STRIDES ARCOLAB LIMITED-2020SP005403

PATIENT
  Age: 61 Year
  Sex: Female

DRUGS (7)
  1. ACICLOVIR [Concomitant]
     Active Substance: ACYCLOVIR
     Indication: EVIDENCE BASED TREATMENT
  2. ACICLOVIR [Concomitant]
     Active Substance: ACYCLOVIR
     Indication: ANTIBIOTIC PROPHYLAXIS
     Dosage: 400 MILLIGRAM, BID
     Route: 065
  3. MYCOPHENOLATE MOFETIL. [Suspect]
     Active Substance: MYCOPHENOLATE MOFETIL
     Indication: LIVER TRANSPLANT
     Dosage: UNK, MAINTENANCE
     Route: 065
  4. PREDNISOLONE. [Suspect]
     Active Substance: PREDNISOLONE
     Indication: LIVER TRANSPLANT
     Dosage: UNK, MAINTENANCE
     Route: 065
  5. COTRIMOXAZOLE [Concomitant]
     Active Substance: SULFAMETHOXAZOLE\TRIMETHOPRIM
     Indication: ANTIBIOTIC PROPHYLAXIS
     Dosage: 1 DOUBLE STRENGTH (DS) TABLET THREE TIMES WEEKLY
     Route: 065
  6. TACROLIMUS. [Suspect]
     Active Substance: TACROLIMUS
     Indication: LIVER TRANSPLANT
     Dosage: UNK, MAINTENANCE
     Route: 065
  7. ACICLOVIR [Concomitant]
     Active Substance: ACYCLOVIR
     Indication: ENCEPHALITIS
     Dosage: UNK
     Route: 042

REACTIONS (25)
  - Diarrhoea [Recovered/Resolved]
  - Enterococcal infection [Unknown]
  - Abdominal wall infection [Recovered/Resolved]
  - Hepatic necrosis [Unknown]
  - Cholestasis [Unknown]
  - Cytomegalovirus infection [Recovered/Resolved]
  - Abdominal tenderness [Unknown]
  - Respiratory failure [Unknown]
  - Effusion [Unknown]
  - Tremor [Unknown]
  - Small intestinal obstruction [Unknown]
  - Dyspnoea [Unknown]
  - Confusional state [Unknown]
  - Tachypnoea [Unknown]
  - Clostridium difficile colitis [Recovered/Resolved]
  - Pneumonia klebsiella [Unknown]
  - Communication disorder [Unknown]
  - Atelectasis [Unknown]
  - Pyrexia [Unknown]
  - Tachycardia [Unknown]
  - Hypotension [Unknown]
  - Abdominal abscess [Recovered/Resolved]
  - Sepsis syndrome [Fatal]
  - Subarachnoid haemorrhage [Unknown]
  - Toxoplasmosis [Unknown]
